FAERS Safety Report 15462125 (Version 1)
Quarter: 2018Q4

REPORT INFORMATION
  Report Type: Spontaneous
  Country: CN (occurrence: CN)
  Receive Date: 20181004
  Receipt Date: 20181004
  Transmission Date: 20190204
  Serious: Yes (Other)
  Sender: FDA-Public Use
  Company Number: CN-INCYTE CORPORATION-2018IN010064

PATIENT

DRUGS (1)
  1. JAKAVI [Suspect]
     Active Substance: RUXOLITINIB
     Indication: PRODUCT USED FOR UNKNOWN INDICATION
     Dosage: UNK
     Route: 065
     Dates: start: 20180518

REACTIONS (5)
  - Haemoglobin decreased [Unknown]
  - Muscle spasms [Unknown]
  - White blood cell count decreased [Unknown]
  - Blood erythropoietin increased [Unknown]
  - Serum ferritin increased [Unknown]
